FAERS Safety Report 5915033-3 (Version None)
Quarter: 2008Q4

REPORT INFORMATION
  Report Type: 
  Country: None (occurrence: None)
  Receive Date: 20081010
  Receipt Date: 20081001
  Transmission Date: 20090506
  Serious: Yes (Hospitalization)
  Sender: FDA-Public Use
  Company Number: FR-WYE-H05779808

PATIENT
  Sex: Female

DRUGS (5)
  1. CORDARONE [Suspect]
     Dosage: 200 MG TABLET, FREQUENCY UNSPECIFIED
     Route: 048
  2. OFLOXACIN [Suspect]
     Route: 048
     Dates: start: 20071118, end: 20071118
  3. FRACTAL [Suspect]
     Dosage: DOSE UNKNOWN
     Route: 048
  4. KARDEGIC [Suspect]
     Dosage: DOSE UNKNOWN
     Route: 065
  5. PREVISCAN [Suspect]
     Dosage: 20 MG TABLET, FREQUENCY UNKNOWN
     Route: 048

REACTIONS (2)
  - ANGIOEDEMA [None]
  - URTICARIA [None]
